FAERS Safety Report 14849323 (Version 1)
Quarter: 2018Q2

REPORT INFORMATION
  Report Type: Report from Study
  Country: US (occurrence: US)
  Receive Date: 20180504
  Receipt Date: 20180504
  Transmission Date: 20180711
  Serious: Yes (Hospitalization, Other)
  Sender: FDA-Public Use
  Company Number: US-ASTRAZENECA-2017SE60715

PATIENT
  Age: 25110 Day
  Sex: Female
  Weight: 53.1 kg

DRUGS (22)
  1. LYNPARZA [Suspect]
     Active Substance: OLAPARIB
     Indication: OVARIAN CANCER METASTATIC
     Route: 048
     Dates: end: 20180215
  2. BENADRYL [Concomitant]
     Active Substance: DIPHENHYDRAMINE HYDROCHLORIDE
  3. APIXABAN [Concomitant]
     Active Substance: APIXABAN
  4. LYNPARZA [Suspect]
     Active Substance: OLAPARIB
     Indication: OVARIAN CANCER METASTATIC
     Route: 048
     Dates: start: 20170110, end: 20170509
  5. NEURONTIN [Concomitant]
     Active Substance: GABAPENTIN
  6. APIXABAN [Concomitant]
     Active Substance: APIXABAN
  7. CALTRATE WITH VITAMIN D [Concomitant]
     Active Substance: CALCIUM CARBONATE\CHOLECALCIFEROL
     Route: 048
  8. CIPRO [Concomitant]
     Active Substance: CIPROFLOXACIN HYDROCHLORIDE
  9. LYNPARZA [Suspect]
     Active Substance: OLAPARIB
     Indication: PERITONEAL CANCER INDEX
     Route: 048
     Dates: end: 20180215
  10. MS CONTIN [Concomitant]
     Active Substance: MORPHINE SULFATE
  11. KLOR-CON [Concomitant]
     Active Substance: POTASSIUM CHLORIDE
  12. TYLENOL [Concomitant]
     Active Substance: ACETAMINOPHEN
  13. LYNPARZA [Suspect]
     Active Substance: OLAPARIB
     Indication: PERITONEAL CANCER INDEX
     Route: 048
     Dates: start: 20170510, end: 20180118
  14. LYNPARZA [Suspect]
     Active Substance: OLAPARIB
     Indication: PERITONEAL CANCER INDEX
     Route: 048
  15. LYNPARZA [Suspect]
     Active Substance: OLAPARIB
     Indication: OVARIAN CANCER METASTATIC
     Route: 048
     Dates: start: 20170510, end: 20180118
  16. LYNPARZA [Suspect]
     Active Substance: OLAPARIB
     Indication: OVARIAN CANCER METASTATIC
     Route: 048
  17. PANCRELIPASE. [Concomitant]
     Active Substance: PANCRELIPASE
  18. AMBIEN [Concomitant]
     Active Substance: ZOLPIDEM TARTRATE
  19. LYNPARZA [Suspect]
     Active Substance: OLAPARIB
     Indication: PERITONEAL CANCER INDEX
     Route: 048
     Dates: start: 20170110, end: 20170509
  20. MORPHINE SULPHATE [Concomitant]
     Active Substance: MORPHINE SULFATE
  21. ZOFRAN [Concomitant]
     Active Substance: ONDANSETRON HYDROCHLORIDE
  22. PERCOCET [Concomitant]
     Active Substance: ACETAMINOPHEN\OXYCODONE HYDROCHLORIDE

REACTIONS (20)
  - Mental status changes [Unknown]
  - Hydroureter [Unknown]
  - Anaemia [Recovered/Resolved]
  - Hyponatraemia [Unknown]
  - Acute kidney injury [Recovered/Resolved]
  - Hyperkalaemia [Unknown]
  - Thrombocytopenia [Unknown]
  - Blood urea increased [Unknown]
  - Cystitis radiation [Unknown]
  - Urosepsis [Unknown]
  - Anaemia of chronic disease [Unknown]
  - Off label use [Unknown]
  - Product use in unapproved indication [Unknown]
  - Blood creatinine increased [Recovered/Resolved]
  - Electrolyte imbalance [Recovered/Resolved]
  - Nausea [Recovered/Resolved]
  - Vomiting [Recovered/Resolved]
  - Hydronephrosis [Unknown]
  - Deep vein thrombosis [Unknown]
  - Pyrexia [Recovered/Resolved]

NARRATIVE: CASE EVENT DATE: 20180205
